FAERS Safety Report 12316387 (Version 16)
Quarter: 2017Q3

REPORT INFORMATION
  Report Type: Spontaneous
  Country: CA (occurrence: CA)
  Receive Date: 20160429
  Receipt Date: 20170824
  Transmission Date: 20171127
  Serious: Yes (Hospitalization, Other)
  Sender: FDA-Public Use
  Company Number: CA-ROCHE-1748688

PATIENT
  Age: 43 Year
  Sex: Female
  Weight: 95 kg

DRUGS (14)
  1. XOLAIR [Suspect]
     Active Substance: OMALIZUMAB
     Indication: ASTHMA
     Route: 058
     Dates: start: 20080529
  2. XOLAIR [Suspect]
     Active Substance: OMALIZUMAB
     Route: 058
     Dates: start: 20141211
  3. XOLAIR [Suspect]
     Active Substance: OMALIZUMAB
     Route: 058
     Dates: start: 20170704
  4. TYLENOL [Concomitant]
     Active Substance: ACETAMINOPHEN
     Indication: PRODUCT USED FOR UNKNOWN INDICATION
     Route: 065
     Dates: start: 20150607
  5. XOLAIR [Suspect]
     Active Substance: OMALIZUMAB
     Route: 058
     Dates: start: 20160420
  6. XOLAIR [Suspect]
     Active Substance: OMALIZUMAB
     Route: 058
     Dates: start: 20170412
  7. XOLAIR [Suspect]
     Active Substance: OMALIZUMAB
     Route: 058
     Dates: start: 20160914
  8. BREO ELLIPTA [Concomitant]
     Active Substance: FLUTICASONE FUROATE\VILANTEROL TRIFENATATE
     Route: 055
  9. BREO ELLIPTA [Concomitant]
     Active Substance: FLUTICASONE FUROATE\VILANTEROL TRIFENATATE
     Indication: DYSPNOEA
     Route: 055
  10. CORTISONE [Concomitant]
     Active Substance: CORTISONE\HYDROCORTISONE
     Indication: INJURY
     Route: 058
  11. XOLAIR [Suspect]
     Active Substance: OMALIZUMAB
     Route: 058
     Dates: start: 20150313
  12. XOLAIR [Suspect]
     Active Substance: OMALIZUMAB
     Route: 058
     Dates: start: 20170512
  13. XOLAIR [Suspect]
     Active Substance: OMALIZUMAB
     Route: 058
     Dates: start: 20161021
  14. XOLAIR [Suspect]
     Active Substance: OMALIZUMAB
     Route: 058
     Dates: start: 20130612

REACTIONS (31)
  - Nausea [Unknown]
  - Ocular hyperaemia [Unknown]
  - Fatigue [Recovering/Resolving]
  - Pyrexia [Unknown]
  - Gastroenteritis [Not Recovered/Not Resolved]
  - Feeling hot [Unknown]
  - Dyspepsia [Recovered/Resolved]
  - Dyspnoea [Unknown]
  - Cough [Unknown]
  - Migraine [Unknown]
  - Intestinal infarction [Unknown]
  - Joint injury [Unknown]
  - Hypersensitivity [Unknown]
  - Influenza [Unknown]
  - Weight increased [Unknown]
  - Blood pressure systolic increased [Unknown]
  - Nasopharyngitis [Recovering/Resolving]
  - Malaise [Unknown]
  - Heart rate increased [Unknown]
  - Insomnia [Unknown]
  - Eye pruritus [Unknown]
  - Visual impairment [Not Recovered/Not Resolved]
  - Asthenia [Not Recovered/Not Resolved]
  - Blood pressure decreased [Unknown]
  - Allergy to animal [Unknown]
  - Eye infection [Recovering/Resolving]
  - Gastrointestinal viral infection [Unknown]
  - Headache [Unknown]
  - Dysphonia [Recovering/Resolving]
  - Oropharyngeal pain [Recovering/Resolving]
  - Vomiting [Recovered/Resolved]

NARRATIVE: CASE EVENT DATE: 20091215
